FAERS Safety Report 5594067-5 (Version None)
Quarter: 2008Q1

REPORT INFORMATION
  Report Type: 
  Country: None (occurrence: None)
  Receive Date: 20080116
  Receipt Date: 20080104
  Transmission Date: 20080703
  Serious: Yes (Other)
  Sender: FDA-Public Use
  Company Number: GB-PFIZER INC-2007096194

PATIENT
  Sex: Female

DRUGS (2)
  1. EPANUTIN SUSPENSION [Suspect]
  2. LEVETIRACETAM [Concomitant]

REACTIONS (2)
  - ANTICONVULSANT DRUG LEVEL INCREASED [None]
  - INTENTIONAL DRUG MISUSE [None]
